FAERS Safety Report 9260204 (Version 1)
Quarter: 2013Q2

REPORT INFORMATION
  Report Type: Spontaneous
  Country: US (occurrence: US)
  Receive Date: 20130429
  Receipt Date: 20130429
  Transmission Date: 20140414
  Serious: Yes (Other)
  Sender: FDA-Public Use
  Company Number: US-PFIZER INC-2013130832

PATIENT
  Age: 71 Year
  Sex: Male
  Weight: 70.3 kg

DRUGS (1)
  1. TIKOSYN [Suspect]
     Indication: ARRHYTHMIA
     Dosage: 0.25 MG, 2X/DAY
     Route: 048

REACTIONS (7)
  - Paralysis [Unknown]
  - Blood sodium decreased [Unknown]
  - Visual impairment [Unknown]
  - Back pain [Unknown]
  - Parkinsonism [Unknown]
  - Dizziness [Unknown]
  - Asthenia [Unknown]
